FAERS Safety Report 26079376 (Version 1)
Quarter: 2025Q4

REPORT INFORMATION
  Report Type: Spontaneous
  Country: US (occurrence: US)
  Receive Date: 20251123
  Receipt Date: 20251123
  Transmission Date: 20260118
  Serious: No
  Sender: ALEXION PHARMACEUTICALS
  Company Number: US-AstraZeneca-CH-00999228A

PATIENT
  Age: 55 Year
  Sex: Female

DRUGS (1)
  1. FARXIGA [Suspect]
     Active Substance: DAPAGLIFLOZIN PROPANEDIOL
     Dosage: UNK
     Route: 065

REACTIONS (5)
  - Hyperhidrosis [Unknown]
  - Neck pain [Unknown]
  - Crying [Unknown]
  - Depressed mood [Unknown]
  - Affect lability [Unknown]
